FAERS Safety Report 7943559 (Version 3)
Quarter: 2013Q4

REPORT INFORMATION
  Report Type: Spontaneous
  Country: US (occurrence: US)
  Receive Date: 20110513
  Receipt Date: 20131226
  Transmission Date: 20140711
  Serious: Yes (Hospitalization, Other)
  Sender: FDA-Public Use
  Company Number: US-BAYER-2011-040598

PATIENT
  Age: 36 Year
  Sex: Female
  Weight: 54.42 kg

DRUGS (11)
  1. YAZ [Suspect]
     Indication: CONTRACEPTION
     Dosage: UNK
     Dates: start: 2007, end: 201003
  2. DOXYCYCLINE [Concomitant]
     Dosage: 50 MG, BID
     Route: 048
  3. NEXIUM [Concomitant]
  4. CARAFATE [Concomitant]
  5. VITAMIN C [Concomitant]
     Route: 048
  6. FLUOROMETHOLONE [Concomitant]
     Route: 047
  7. MYLANTA [ALUMINIUM OXIDE,MAGNESIUM HYDROXIDE,SIMETICONE] [Concomitant]
     Dosage: UNK
     Route: 048
     Dates: start: 20091210
  8. VALACICLOVIR [Concomitant]
     Dosage: 1 G, UNK
     Route: 048
  9. ZOVIRAX [Concomitant]
     Dosage: 15 %, UNK
     Route: 061
  10. NITROFURANTOIN [Concomitant]
     Dosage: 100 MG, UNK
     Route: 048
  11. ZYMAR [Concomitant]
     Dosage: 0.3 %, UNK
     Route: 047

REACTIONS (3)
  - Cholelithiasis [None]
  - Cholecystitis chronic [Unknown]
  - Injury [None]
